FAERS Safety Report 5909197-5 (Version None)
Quarter: 2008Q4

REPORT INFORMATION
  Report Type: 
  Country: None (occurrence: None)
  Receive Date: 20081006
  Receipt Date: 20080929
  Transmission Date: 20090506
  Serious: Yes (Hospitalization)
  Sender: FDA-Public Use
  Company Number: PHBS2008IN05879

PATIENT
  Age: 75 Year
  Sex: Female
  Weight: 50 kg

DRUGS (6)
  1. METOPROLOL TARTRATE [Suspect]
     Indication: BLOOD PRESSURE INCREASED
     Dosage: 5 MG, UNK
  2. ISOFLURANE [Suspect]
  3. PROPOFOL [Concomitant]
  4. FENTANYL [Concomitant]
  5. INTUBATION [Concomitant]
  6. VECURONIUM BROMIDE [Concomitant]

REACTIONS (8)
  - BREATH SOUNDS ABNORMAL [None]
  - CHEST X-RAY ABNORMAL [None]
  - ENDOTRACHEAL INTUBATION [None]
  - INCREASED BRONCHIAL SECRETION [None]
  - LUNG INFILTRATION [None]
  - OXYGEN SATURATION DECREASED [None]
  - PULMONARY OEDEMA [None]
  - TACHYPNOEA [None]
